FAERS Safety Report 13386332 (Version 1)
Quarter: 2017Q1

REPORT INFORMATION
  Report Type: Spontaneous
  Country: FR (occurrence: FR)
  Receive Date: 20170330
  Receipt Date: 20170330
  Transmission Date: 20170429
  Serious: Yes (Other)
  Sender: FDA-Public Use
  Company Number: FR-ELI_LILLY_AND_COMPANY-FR201703007929

PATIENT
  Age: 62 Year
  Sex: Female

DRUGS (1)
  1. FORSTEO [Suspect]
     Active Substance: TERIPARATIDE
     Indication: LUMBAR VERTEBRAL FRACTURE
     Dosage: 1 DF, DAILY
     Route: 058
     Dates: start: 201512, end: 201611

REACTIONS (8)
  - Pain in jaw [Recovering/Resolving]
  - Myalgia [Recovering/Resolving]
  - Muscular weakness [Recovering/Resolving]
  - Gait disturbance [Unknown]
  - Suicidal ideation [Recovering/Resolving]
  - Weight increased [Recovering/Resolving]
  - Depression [Recovering/Resolving]
  - Off label use [Recovered/Resolved]

NARRATIVE: CASE EVENT DATE: 201512
